FAERS Safety Report 15614544 (Version 2)
Quarter: 2018Q4

REPORT INFORMATION
  Report Type: Spontaneous
  Country: US (occurrence: US)
  Receive Date: 20181113
  Receipt Date: 20181121
  Transmission Date: 20190205
  Serious: Yes (Other)
  Sender: FDA-Public Use
  Company Number: US-BEH-2018096600

PATIENT
  Age: 26 Year
  Sex: Female

DRUGS (1)
  1. HUMATE-P [Suspect]
     Active Substance: HUMAN COAGULATION FACTOR VIII/VON WILLEBRAND FACTOR COMPLEX
     Indication: VON WILLEBRAND^S DISEASE
     Dosage: 4000 RCOF UNITS, AS NEEDED
     Route: 042
     Dates: start: 20170407, end: 20181103

REACTIONS (4)
  - Feeling cold [Unknown]
  - Tremor [Unknown]
  - Anaphylactic reaction [Unknown]
  - Unevaluable event [Unknown]
